FAERS Safety Report 6484328-X (Version None)
Quarter: 2009Q4

REPORT INFORMATION
  Report Type: 
  Country: None (occurrence: None)
  Receive Date: 20091203
  Receipt Date: 20091124
  Transmission Date: 20100525
  Serious: Yes (Other)
  Sender: FDA-Public Use
  Company Number: 2009JP007053

PATIENT
  Age: 11 Month
  Sex: Male

DRUGS (4)
  1. PROGRAF [Suspect]
     Indication: CORD BLOOD TRANSPLANT THERAPY
  2. L-PAM (MELPHALAN) FORMULATION UNKNOWN [Suspect]
     Dosage: 140 MG/M2
  3. METHOTREXATE [Concomitant]
  4. FLUDARABINE PHOSPHATE [Concomitant]

REACTIONS (7)
  - GASTROINTESTINAL HAEMORRHAGE [None]
  - MULTI-ORGAN FAILURE [None]
  - PULMONARY HAEMORRHAGE [None]
  - PULMONARY VENO-OCCLUSIVE DISEASE [None]
  - PYREXIA [None]
  - THERAPEUTIC RESPONSE DECREASED [None]
  - THROMBOTIC MICROANGIOPATHY [None]
